FAERS Safety Report 12423126 (Version 1)
Quarter: 2016Q2

REPORT INFORMATION
  Report Type: Spontaneous
  Country: CH (occurrence: CH)
  Receive Date: 20160601
  Receipt Date: 20160601
  Transmission Date: 20160815
  Serious: Yes (Life-Threatening, Hospitalization, Other)
  Sender: FDA-Public Use
  Company Number: CH-ACTAVIS-2016-11353

PATIENT
  Age: 64 Year
  Sex: Male

DRUGS (5)
  1. SEVIKAR HCT [Suspect]
     Active Substance: AMLODIPINE BESYLATE\HYDROCHLOROTHIAZIDE\OLMESARTAN MEDOXOMIL
     Indication: HYPERTENSIVE HEART DISEASE
     Dosage: 1 DF, DAILY
     Route: 065
     Dates: end: 20160311
  2. TOREM                              /01036501/ [Suspect]
     Active Substance: TORSEMIDE
     Indication: HYPERTENSIVE HEART DISEASE
     Dosage: 10 MG, DAILY
     Route: 048
     Dates: end: 20160311
  3. JANUMET [Suspect]
     Active Substance: METFORMIN HYDROCHLORIDE\SITAGLIPTIN PHOSPHATE
     Indication: TYPE 2 DIABETES MELLITUS
     Dosage: 1 DF, DAILY
     Route: 048
     Dates: end: 20160311
  4. SIMVASTATIN (UNKNOWN) [Suspect]
     Active Substance: SIMVASTATIN
     Indication: DYSLIPIDAEMIA
     Dosage: 40 MG, DAILY
     Route: 048
     Dates: start: 20160128, end: 20160311
  5. BILOL [Suspect]
     Active Substance: BISOPROLOL
     Indication: HYPERTENSIVE HEART DISEASE
     Dosage: 2.5 MG, DAILY
     Route: 048
     Dates: end: 20160314

REACTIONS (2)
  - Transaminases increased [Recovered/Resolved]
  - Acute kidney injury [Recovered/Resolved]

NARRATIVE: CASE EVENT DATE: 20160307
